FAERS Safety Report 10418577 (Version 1)
Quarter: 2014Q3

REPORT INFORMATION
  Report Type: Spontaneous
  Country: US (occurrence: US)
  Receive Date: 20140829
  Receipt Date: 20140829
  Transmission Date: 20150326
  Serious: No
  Sender: FDA-Public Use
  Company Number: US-ENDO PHARMACEUTICALS INC.-HYDR20130018

PATIENT
  Age: 67 Year
  Sex: Male
  Weight: 106.69 kg

DRUGS (1)
  1. HYDROCORTISONE TABLETS 10MG [Suspect]
     Active Substance: HYDROCORTISONE
     Indication: HYPOTHALAMO-PITUITARY DISORDER
     Route: 048
     Dates: start: 1983

REACTIONS (1)
  - Rash generalised [Not Recovered/Not Resolved]

NARRATIVE: CASE EVENT DATE: 20131027
